FAERS Safety Report 17075662 (Version 6)
Quarter: 2020Q1

REPORT INFORMATION
  Report Type: Spontaneous
  Country: US (occurrence: US)
  Receive Date: 20191126
  Receipt Date: 20200228
  Transmission Date: 20200409
  Serious: Yes (Disabling)
  Sender: FDA-Public Use
  Company Number: US-PFIZER INC-2019507537

PATIENT
  Age: 61 Year
  Sex: Male
  Weight: 95.24 kg

DRUGS (5)
  1. DETROL LA [Suspect]
     Active Substance: TOLTERODINE TARTRATE
     Indication: DYSURIA
     Dosage: 4 MG, UNK
     Dates: start: 2002
  2. DETROL LA [Suspect]
     Active Substance: TOLTERODINE TARTRATE
     Indication: BENIGN PROSTATIC HYPERPLASIA
     Dosage: 4 MG, DAILY, [TAKE 1 CAPSULE EVERY DAY BY ORAL ROUTE FOR 90 DAYS]
     Route: 048
  3. SKELAXIN [METAXALONE] [Concomitant]
     Dosage: UNK
  4. DETROL LA [Suspect]
     Active Substance: TOLTERODINE TARTRATE
     Indication: PROSTATIC OBSTRUCTION
  5. DETROL LA [Suspect]
     Active Substance: TOLTERODINE TARTRATE
     Indication: LOWER URINARY TRACT SYMPTOMS

REACTIONS (4)
  - Disturbance in attention [Unknown]
  - Pain [Unknown]
  - Rotator cuff syndrome [Unknown]
  - Arthritis [Unknown]
